FAERS Safety Report 11072771 (Version 1)
Quarter: 2015Q2

REPORT INFORMATION
  Report Type: Spontaneous
  Country: SE (occurrence: SE)
  Receive Date: 20150428
  Receipt Date: 20150428
  Transmission Date: 20150821
  Serious: Yes (Life-Threatening)
  Sender: FDA-Public Use
  Company Number: SE-TEVA-556684ISR

PATIENT
  Age: 23 Year
  Sex: Female

DRUGS (5)
  1. POSTAFEN [Concomitant]
     Active Substance: BUCLIZINE HYDROCHLORIDE
  2. LORATADINE. [Suspect]
     Active Substance: LORATADINE
  3. TAVEGYL [Concomitant]
     Active Substance: CLEMASTINE FUMARATE
  4. CIPRALEX [Concomitant]
     Active Substance: ESCITALOPRAM OXALATE
  5. CETIRIZINE [Suspect]
     Active Substance: CETIRIZINE HYDROCHLORIDE

REACTIONS (1)
  - Toxicity to various agents [Recovered/Resolved]
